FAERS Safety Report 11632691 (Version 2)
Quarter: 2015Q4

REPORT INFORMATION
  Report Type: Report from Study
  Country: US (occurrence: US)
  Receive Date: 20151015
  Receipt Date: 20151026
  Transmission Date: 20160304
  Serious: Yes (Hospitalization, Other)
  Sender: FDA-Public Use
  Company Number: US-BAYER-2015-229892

PATIENT
  Age: 63 Year
  Sex: Female
  Weight: 45.35 kg

DRUGS (8)
  1. ACETAMINOPHEN. [Concomitant]
     Active Substance: ACETAMINOPHEN
  2. STIVARGA [Suspect]
     Active Substance: REGORAFENIB
     Indication: PRODUCT USED FOR UNKNOWN INDICATION
     Dosage: 160 MG, QD(FOR 21 DAYS ,7DAYS OFF)
     Route: 048
     Dates: start: 2015, end: 20150908
  3. HYDROCODONE [Concomitant]
     Active Substance: HYDROCODONE
  4. OXALIPLATIN. [Concomitant]
     Active Substance: OXALIPLATIN
  5. STIVARGA [Suspect]
     Active Substance: REGORAFENIB
     Indication: PRODUCT USED FOR UNKNOWN INDICATION
     Dosage: 120 MG, QD
     Route: 048
  6. RIOPAN [Concomitant]
     Active Substance: MAGALDRATE
  7. NEXIUM [Concomitant]
     Active Substance: ESOMEPRAZOLE MAGNESIUM
  8. STIVARGA [Suspect]
     Active Substance: REGORAFENIB
     Indication: PRODUCT USED FOR UNKNOWN INDICATION
     Dosage: 160 MG DAILY
     Route: 048
     Dates: start: 20150414, end: 201505

REACTIONS (13)
  - Abdominal pain upper [Unknown]
  - Fatigue [Unknown]
  - Herpes zoster [None]
  - Abdominal discomfort [Unknown]
  - Gastric disorder [None]
  - Haemorrhoidal haemorrhage [None]
  - Diarrhoea [None]
  - Haemoglobin decreased [None]
  - Dry skin [Unknown]
  - Weight decreased [Unknown]
  - Intentional product use issue [None]
  - Flatulence [Unknown]
  - Diarrhoea [Unknown]

NARRATIVE: CASE EVENT DATE: 20150506
